FAERS Safety Report 16466180 (Version 5)
Quarter: 2021Q4

REPORT INFORMATION
  Report Type: Other
  Country: US (occurrence: US)
  Receive Date: 20190621
  Receipt Date: 20211221
  Transmission Date: 20220304
  Serious: Yes (Hospitalization, Other)
  Sender: FDA-Public Use
  Company Number: US-ACORDA-ACO_159173_2019

PATIENT
  Age: 64 Year
  Sex: Female

DRUGS (9)
  1. INBRIJA [Suspect]
     Active Substance: LEVODOPA
     Indication: Parkinson^s disease
     Dosage: 84 MILLIGRAM, PRN, UP TO 5 TIMES DAILY
     Dates: start: 20190429
  2. INBRIJA [Suspect]
     Active Substance: LEVODOPA
     Indication: On and off phenomenon
  3. CARBIDOPA AND LEVODOPA [Concomitant]
     Active Substance: CARBIDOPA\LEVODOPA
     Indication: Product used for unknown indication
     Dosage: UNK
     Route: 065
  4. ENTACAPONE [Concomitant]
     Active Substance: ENTACAPONE
     Indication: Product used for unknown indication
     Dosage: UNK
     Route: 065
  5. RYTARY [Concomitant]
     Active Substance: CARBIDOPA\LEVODOPA
     Indication: Product used for unknown indication
     Dosage: UNK
     Route: 065
  6. WELLBUTRIN [Concomitant]
     Active Substance: BUPROPION HYDROCHLORIDE
     Indication: Product used for unknown indication
     Dosage: UNK
     Route: 065
  7. OTHER THERAPEUTIC PRODUCTS ^Medapex^ [Concomitant]
     Indication: Product used for unknown indication
     Dosage: UNK
     Route: 065
  8. NUPLAZID [Concomitant]
     Active Substance: PIMAVANSERIN TARTRATE
     Indication: Product used for unknown indication
     Dosage: UNK
     Route: 065
  9. CLONIDINE HYDROCHLORIDE [Concomitant]
     Active Substance: CLONIDINE HYDROCHLORIDE
     Indication: Product used for unknown indication
     Dosage: 25 MICROGRAM
     Route: 065

REACTIONS (14)
  - Mental disorder [Not Recovered/Not Resolved]
  - Brain operation [Not Recovered/Not Resolved]
  - Arthropathy [Unknown]
  - Upper limb fracture [Unknown]
  - Cognitive disorder [Not Recovered/Not Resolved]
  - Product residue present [Not Recovered/Not Resolved]
  - Dry throat [Unknown]
  - Retching [Unknown]
  - Therapeutic product effect incomplete [Unknown]
  - Memory impairment [Not Recovered/Not Resolved]
  - Device difficult to use [Unknown]
  - Tremor [Not Recovered/Not Resolved]
  - Tension [Not Recovered/Not Resolved]
  - Cough [Unknown]

NARRATIVE: CASE EVENT DATE: 20190604
